FAERS Safety Report 6065988-4 (Version None)
Quarter: 2009Q1

REPORT INFORMATION
  Report Type: 
  Country: None (occurrence: None)
  Receive Date: 20090205
  Receipt Date: 20090127
  Transmission Date: 20090719
  Serious: Yes (Hospitalization)
  Sender: FDA-Public Use
  Company Number: FR-AMGEN-UK330435

PATIENT
  Sex: Female

DRUGS (5)
  1. ARANESP [Suspect]
     Indication: DRUG USE FOR UNKNOWN INDICATION
     Route: 058
     Dates: start: 20081001, end: 20081001
  2. AMLOD [Concomitant]
  3. SECTRAL [Concomitant]
  4. PLAVIX [Concomitant]
  5. ADROVANCE [Concomitant]

REACTIONS (5)
  - FEELING HOT [None]
  - LEUKOCYTOCLASTIC VASCULITIS [None]
  - PRURITUS [None]
  - PURPURA [None]
  - SKIN NECROSIS [None]
